FAERS Safety Report 9592235 (Version 1)
Quarter: 2013Q4

REPORT INFORMATION
  Report Type: Report from Study
  Country: US (occurrence: US)
  Receive Date: 20131004
  Receipt Date: 20131004
  Transmission Date: 20140711
  Serious: Yes (Other)
  Sender: FDA-Public Use
  Company Number: US-ROCHE-1282905

PATIENT
  Sex: 0

DRUGS (8)
  1. RITUXIMAB [Suspect]
     Indication: CHRONIC LYMPHOCYTIC LEUKAEMIA
     Dosage: CYCLE 1 AND DAY 1
     Route: 042
  2. RITUXIMAB [Suspect]
     Dosage: CYCLE 1, DAY 2 AND CYCLE 2-CYCLE 6 ON DAY 1
     Route: 042
  3. CYCLOPHOSPHAMIDE [Suspect]
     Indication: CHRONIC LYMPHOCYTIC LEUKAEMIA
     Dosage: CYCLE 1- 6, DAY 1-3
     Route: 042
  4. CYCLOPHOSPHAMIDE [Suspect]
     Dosage: CYCLE 1-6, DAY 1-3
     Route: 042
  5. ALVOCIDIB [Suspect]
     Indication: CHRONIC LYMPHOCYTIC LEUKAEMIA
     Dosage: 30 MG/M2 IV (30 MIN), 30 MG/M2 IV (4 H) CYCLE 1 DAY 8, CYCLE 2-6 DAY 1 AND 8
     Route: 042
  6. ALVOCIDIB [Suspect]
     Dosage: CYCLE 1 DAY 8, CYCLE 2-6 DAY 1 AND 8; DOSE OF 30 OR 50 MG/M2 (4 H)WHICH IS AFTER THE INITIAL DOSE OF
     Route: 042
  7. ALLOPURINOL [Concomitant]
     Route: 065
  8. RASBURICASE [Concomitant]

REACTIONS (5)
  - Anaemia [Recovered/Resolved]
  - Leukopenia [Recovered/Resolved]
  - Neutropenia [Recovered/Resolved]
  - Thrombocytopenia [Recovered/Resolved]
  - Electrolyte imbalance [Recovered/Resolved]
